FAERS Safety Report 8449811-6 (Version None)
Quarter: 2012Q2

REPORT INFORMATION
  Report Type: 
  Country: None (occurrence: None)
  Receive Date: 20120620
  Receipt Date: 20120608
  Transmission Date: 20120825
  Serious: Yes (Hospitalization, Other)
  Sender: FDA-Public Use
  Company Number: FR-ELI_LILLY_AND_COMPANY-FR201204002708

PATIENT
  Age: 57 Year
  Sex: Female
  Weight: 62 kg

DRUGS (4)
  1. ZYPREXA [Suspect]
     Indication: SCHIZOPHRENIA
     Dosage: 20 MG, QD
     Route: 048
     Dates: start: 20120206, end: 20120301
  2. ZYPREXA [Suspect]
     Dosage: 10 MG, QD
     Route: 048
     Dates: start: 20120301, end: 20120312
  3. OLANZAPINE [Suspect]
     Dosage: 300 MG, EVERY 3 WEEKS
     Route: 030
     Dates: start: 20120320
  4. OLANZAPINE [Suspect]
     Indication: SCHIZOPHRENIA
     Dosage: 405 MG, EVERY 3 WEEKS
     Route: 030
     Dates: start: 20120301

REACTIONS (6)
  - FATIGUE [None]
  - SEDATION [None]
  - OVERDOSE [None]
  - MENTAL DISORDER [None]
  - DELIRIUM [None]
  - DIZZINESS [None]
